FAERS Safety Report 4775864-2 (Version None)
Quarter: 2005Q3

REPORT INFORMATION
  Report Type: 
  Country: None (occurrence: None)
  Receive Date: 20050914
  Receipt Date: 20050324
  Transmission Date: 20060218
  Serious: Yes (Hospitalization)
  Sender: FDA-Public Use
  Company Number: 163-20785-05030676

PATIENT
  Age: 70 Year
  Sex: Female
  Weight: 73 kg

DRUGS (29)
  1. THALOMID [Suspect]
     Indication: MULTIPLE MYELOMA
     Dosage: 200 MG, DAILY, ORAL
     Route: 048
     Dates: start: 20041023
  2. THALOMID [Suspect]
     Indication: MULTIPLE MYELOMA
     Dosage: 200 MG, DAILY, ORAL
     Route: 048
     Dates: start: 20041122
  3. MELPHALAN (MELPHALAN) (UNKNOWN) [Suspect]
     Dosage: 225 MG, 1 DAY, INTRAVENOUS
     Route: 042
     Dates: start: 20041217, end: 20041217
  4. BORTEZOMIB (BORTEZOMIB) [Suspect]
     Indication: MULTIPLE MYELOMA
     Dates: start: 20041023
  5. BORTEZOMIB (BORTEZOMIB) [Suspect]
     Indication: MULTIPLE MYELOMA
     Dates: start: 20041122
  6. DEXAMETHASONE [Suspect]
     Indication: MULTIPLE MYELOMA
     Dates: start: 20041023
  7. DEXAMETHASONE [Suspect]
     Indication: MULTIPLE MYELOMA
     Dates: start: 20041122
  8. CISPLATIN [Suspect]
     Indication: MULTIPLE MYELOMA
     Dates: start: 20041023
  9. CISPLATIN [Suspect]
     Indication: MULTIPLE MYELOMA
     Dates: start: 20041122
  10. ADRIAMYCIN PFS [Suspect]
     Indication: MULTIPLE MYELOMA
     Dates: start: 20041023
  11. ADRIAMYCIN PFS [Suspect]
     Indication: MULTIPLE MYELOMA
     Dates: start: 20041122
  12. CYCLOPHOSPHAMIDE [Suspect]
     Indication: MULTIPLE MYELOMA
     Dates: start: 20041023
  13. CYCLOPHOSPHAMIDE [Suspect]
     Indication: MULTIPLE MYELOMA
     Dates: start: 20041122
  14. ETOPOSIDE [Suspect]
     Indication: MULTIPLE MYELOMA
     Dates: start: 20041023
  15. ETOPOSIDE [Suspect]
     Indication: MULTIPLE MYELOMA
     Dates: start: 20041122
  16. METHADONE HCL [Concomitant]
  17. AMBIEN [Concomitant]
  18. ACYCLOVIR [Concomitant]
  19. FLUCONAZOLE [Concomitant]
  20. LEVAQUIN [Concomitant]
  21. PROTONIX [Concomitant]
  22. TEQUIN [Concomitant]
  23. ZOLOFT [Concomitant]
  24. DETROL [Concomitant]
  25. DIGOXIN [Concomitant]
  26. MULTI-VITAMINS [Concomitant]
  27. FLEXERIL [Concomitant]
  28. HYDROCHLOROTHIAZIDE [Concomitant]
  29. FOLIC ACID [Concomitant]

REACTIONS (12)
  - ASTHENIA [None]
  - C-REACTIVE PROTEIN INCREASED [None]
  - CONFUSIONAL STATE [None]
  - FATIGUE [None]
  - LETHARGY [None]
  - MUCOSAL INFLAMMATION [None]
  - OESOPHAGITIS [None]
  - PANCYTOPENIA [None]
  - PNEUMONIA FUNGAL [None]
  - PRODUCTIVE COUGH [None]
  - PYREXIA [None]
  - STAPHYLOCOCCAL SEPSIS [None]
